FAERS Safety Report 6013308-3 (Version None)
Quarter: 2008Q4

REPORT INFORMATION
  Report Type: 
  Country: None (occurrence: None)
  Receive Date: 20081216
  Receipt Date: 20081013
  Transmission Date: 20090506
  Serious: Yes (Other)
  Sender: FDA-Public Use
  Company Number: US-WYE-H06377308

PATIENT
  Age: 53 Year
  Sex: Female
  Weight: 49.94 kg

DRUGS (6)
  1. EFFEXOR XR [Suspect]
     Indication: ANXIETY
     Dosage: 75 MG 1X PER 1 DAY, ORAL ; 37.5 MG 1X PER 1 DAY, ORAL
     Route: 048
     Dates: start: 20080919, end: 20080925
  2. EFFEXOR XR [Suspect]
     Indication: ANXIETY
     Dosage: 75 MG 1X PER 1 DAY, ORAL ; 37.5 MG 1X PER 1 DAY, ORAL
     Route: 048
     Dates: start: 20080926, end: 20081006
  3. LEVOXYL [Concomitant]
  4. CALCIUM (CALCIUM) [Concomitant]
  5. VITAMIN D [Concomitant]
  6. VITAMINS WITH MINERALS (VITAMINS WITH MINERALS) [Concomitant]

REACTIONS (4)
  - ABNORMAL SENSATION IN EYE [None]
  - BRUXISM [None]
  - HEADACHE [None]
  - VISION BLURRED [None]
